FAERS Safety Report 9440112 (Version 1)
Quarter: 2013Q3

REPORT INFORMATION
  Report Type: Report from Study
  Country: JP (occurrence: JP)
  Receive Date: 20130805
  Receipt Date: 20130805
  Transmission Date: 20140515
  Serious: Yes (Life-Threatening, Other)
  Sender: FDA-Public Use
  Company Number: JP-AMGEN-JPNCT2012084545

PATIENT
  Age: 83 Year
  Sex: Male
  Weight: 57 kg

DRUGS (38)
  1. ROMIPLOSTIM - KHK [Suspect]
     Indication: IMMUNE THROMBOCYTOPENIC PURPURA
     Dosage: 1 MUG/KG, QD
     Route: 058
     Dates: start: 20110729
  2. ROMIPLOSTIM - KHK [Suspect]
     Dosage: 2 MUG/KG, QD
     Route: 058
     Dates: start: 20110805
  3. ROMIPLOSTIM - KHK [Suspect]
     Dosage: 3 MUG/KG, QWK
     Route: 058
     Dates: start: 20110812
  4. ROMIPLOSTIM - KHK [Suspect]
     Dosage: 4 MUG/KG, QWK
     Route: 058
     Dates: start: 20110826
  5. ROMIPLOSTIM - KHK [Suspect]
     Dosage: 3 MUG/KG, QD
     Route: 058
     Dates: start: 20110909
  6. ROMIPLOSTIM - KHK [Suspect]
     Dosage: 2 MUG/KG, QD
     Route: 058
     Dates: start: 20120916, end: 20120916
  7. PREDNISOLONE [Concomitant]
     Indication: IMMUNE THROMBOCYTOPENIC PURPURA
     Dosage: 15 MG, UNK
     Route: 048
     Dates: start: 20110715
  8. IMURAN [Concomitant]
     Indication: IMMUNE THROMBOCYTOPENIC PURPURA
     Dosage: 50 MG, UNK
     Route: 048
     Dates: start: 20110502, end: 20120409
  9. ADONA [Concomitant]
     Indication: PROPHYLAXIS
     Dosage: UNK
     Route: 065
  10. AMBISOME [Concomitant]
     Indication: BRONCHOPULMONARY ASPERGILLOSIS
     Dosage: UNK
     Route: 065
  11. FUNGUARD [Concomitant]
     Indication: BRONCHOPULMONARY ASPERGILLOSIS
     Dosage: UNK
     Route: 065
  12. SEFIROM [Concomitant]
     Indication: PNEUMONIA BACTERIAL
     Dosage: UNK
     Route: 065
  13. VICCILLIN [Concomitant]
     Indication: PNEUMONIA BACTERIAL
     Dosage: UNK
     Route: 065
  14. FINIBAX [Concomitant]
     Indication: PNEUMONIA BACTERIAL
     Dosage: UNK
     Route: 065
  15. PAZUCROSS [Concomitant]
     Indication: PNEUMONIA BACTERIAL
     Dosage: UNK
     Route: 065
  16. ITRIZOLE [Concomitant]
     Indication: PROPHYLAXIS
     Dosage: UNK
     Route: 048
  17. FLUITRAN [Concomitant]
     Indication: HYPERTENSION
     Dosage: UNK
     Route: 048
  18. URIEF [Concomitant]
     Indication: BENIGN PROSTATIC HYPERPLASIA
     Dosage: UNK
     Route: 048
  19. HOKUNALIN [Concomitant]
     Indication: CHRONIC OBSTRUCTIVE PULMONARY DISEASE
     Dosage: UNK
     Route: 062
  20. MAGMITT [Concomitant]
     Indication: PROPHYLAXIS
     Dosage: UNK
     Route: 048
  21. BONALON [Concomitant]
     Indication: PROPHYLAXIS
     Dosage: UNK
     Route: 048
  22. LANSOPRAZOLE [Concomitant]
     Indication: PROPHYLAXIS
     Dosage: UNK
     Route: 048
  23. MIYA BM [Concomitant]
     Indication: PROPHYLAXIS
     Dosage: UNK
     Route: 048
  24. CINAL [Concomitant]
     Indication: PROPHYLAXIS
     Dosage: UNK
     Route: 048
  25. ALFAROL [Concomitant]
     Indication: PROPHYLAXIS
     Dosage: UNK
     Route: 048
  26. BAYASPIRIN [Concomitant]
     Indication: PERIPHERAL ARTERIAL OCCLUSIVE DISEASE
     Dosage: UNK
     Route: 048
  27. ALDACTONE A [Concomitant]
     Indication: HYPERTENSION
     Dosage: UNK
     Route: 048
  28. DOGMATYL [Concomitant]
     Indication: PROPHYLAXIS
     Dosage: UNK
     Route: 048
  29. BEZATOL SR [Concomitant]
     Indication: HYPERLIPIDAEMIA
     Dosage: UNK
     Route: 048
  30. SPIRIVA [Concomitant]
     Indication: CHRONIC OBSTRUCTIVE PULMONARY DISEASE
     Dosage: UNK
     Route: 055
  31. KARY UNI [Concomitant]
     Indication: CATARACT
     Dosage: UNK
     Route: 031
  32. OLMETEC [Concomitant]
     Indication: HYPERTENSION
     Dosage: UNK
     Route: 048
  33. ARTIST [Concomitant]
     Indication: HYPERTENSION
     Dosage: UNK
     Route: 048
  34. MEVAN [Concomitant]
     Indication: HYPERLIPIDAEMIA
     Dosage: UNK
     Route: 048
  35. FASTIC [Concomitant]
     Indication: DIABETES MELLITUS
     Dosage: UNK
     Route: 048
  36. DEPAKENE [Concomitant]
     Indication: IRRITABILITY
     Dosage: UNK
     Route: 048
  37. SEROQUEL [Concomitant]
     Indication: IRRITABILITY
     Dosage: UNK
     Route: 048
  38. AMOBAN [Concomitant]
     Indication: INSOMNIA
     Dosage: UNK
     Route: 048

REACTIONS (3)
  - Liver disorder [Recovering/Resolving]
  - Pneumonia [Recovering/Resolving]
  - Septic shock [Recovering/Resolving]
